FAERS Safety Report 9450481 (Version 1)
Quarter: 2013Q3

REPORT INFORMATION
  Report Type: Spontaneous
  Country: CA (occurrence: None)
  Receive Date: 20130807
  Receipt Date: 20130807
  Transmission Date: 20140515
  Serious: Yes (Life-Threatening)
  Sender: FDA-Public Use
  Company Number: FK201302960

PATIENT
  Age: 27 Year
  Sex: Female

DRUGS (4)
  1. PROPOFOL [Suspect]
     Indication: EPILEPSY
     Dosage: 10.7 MG/KG/H, INTRAVENOUS (NOT OTHERWISE SPECIFIED)
     Route: 042
  2. LEVETIRACETAM (LEVETIRACETAM) [Concomitant]
  3. CLOBAZAM (CLOBAZAM) [Concomitant]
  4. VASOPRESSIN (VASOPRESSIN INJECTION) [Concomitant]

REACTIONS (1)
  - Propofol infusion syndrome [None]
